FAERS Safety Report 24652207 (Version 1)
Quarter: 2024Q4

REPORT INFORMATION
  Report Type: Report from Study
  Country: CA (occurrence: CA)
  Receive Date: 20241122
  Receipt Date: 20241122
  Transmission Date: 20250114
  Serious: Yes (Disabling)
  Sender: AMGEN
  Company Number: CA-002147023-NVSC2024CA221987

PATIENT
  Sex: Female

DRUGS (1)
  1. AIMOVIG [Suspect]
     Active Substance: ERENUMAB-AOOE
     Indication: Migraine
     Dosage: UNK
     Route: 065
     Dates: start: 20211011

REACTIONS (2)
  - Drug ineffective [Unknown]
  - Migraine [Unknown]
